FAERS Safety Report 8152594-0 (Version None)
Quarter: 2012Q1

REPORT INFORMATION
  Report Type: 
  Country: None (occurrence: None)
  Receive Date: 20120221
  Receipt Date: 20120215
  Transmission Date: 20120608
  Serious: Yes (Life-Threatening, Hospitalization)
  Sender: FDA-Public Use
  Company Number: US-JNJFOC-20110508130

PATIENT
  Sex: Male
  Weight: 79.5 kg

DRUGS (10)
  1. ASPIRIN [Concomitant]
     Indication: CARDIOVASCULAR EVENT PROPHYLAXIS
     Route: 065
     Dates: start: 20060101
  2. FLUTICASONE PROPIONATE [Concomitant]
     Indication: MULTIPLE ALLERGIES
     Route: 065
     Dates: start: 20101102
  3. METOPROLOL TARTRATE [Concomitant]
     Indication: HYPERTENSION
     Route: 065
     Dates: start: 20110308
  4. PREDNISONE [Suspect]
     Indication: PROSTATE CANCER METASTATIC
     Route: 048
     Dates: start: 20110329
  5. RESTASIS [Concomitant]
     Indication: DRY EYE
     Route: 065
     Dates: start: 20100831
  6. ABIRATERONE ACETATE [Suspect]
     Route: 048
  7. SIMVASTATIN [Interacting]
     Indication: HYPERCHOLESTEROLAEMIA
     Route: 065
     Dates: start: 20101026
  8. ZALEPLON [Concomitant]
     Indication: INSOMNIA
     Route: 065
     Dates: start: 20101102
  9. ABIRATERONE ACETATE [Suspect]
     Indication: PROSTATE CANCER METASTATIC
     Route: 048
     Dates: start: 20110329, end: 20110512
  10. SYSTANE ULTRA [Concomitant]
     Indication: DRY EYE
     Route: 065
     Dates: start: 20100831

REACTIONS (3)
  - RHABDOMYOLYSIS [None]
  - DEHYDRATION [None]
  - DRUG INTERACTION [None]
